FAERS Safety Report 8769747 (Version 1)
Quarter: 2012Q4

REPORT INFORMATION
  Report Type: 
  Country: US (occurrence: US)
  Receive Date: 20120905
  Receipt Date: 20120905
  Transmission Date: 20130627
  Serious: No
  Sender: FDA-Public Use
  Company Number: US-ASTRAZENECA-2012SE57399

PATIENT
  Age: 54 Year
  Sex: Female
  Weight: 127 kg

DRUGS (15)
  1. SEROQUEL [Suspect]
     Indication: ANXIETY
     Route: 048
     Dates: start: 2006, end: 201205
  2. SEROQUEL [Suspect]
     Indication: DEPRESSION
     Route: 048
     Dates: start: 2006, end: 201205
  3. SEROQUEL [Suspect]
     Indication: INSOMNIA
     Route: 048
     Dates: start: 2006, end: 201205
  4. SEROQUEL [Suspect]
     Indication: ANXIETY
     Dosage: GENERIC
     Route: 048
     Dates: start: 201205, end: 201206
  5. SEROQUEL [Suspect]
     Indication: DEPRESSION
     Dosage: GENERIC
     Route: 048
     Dates: start: 201205, end: 201206
  6. SEROQUEL [Suspect]
     Indication: INSOMNIA
     Dosage: GENERIC
     Route: 048
     Dates: start: 201205, end: 201206
  7. SEROQUEL [Suspect]
     Indication: ANXIETY
     Route: 048
     Dates: start: 201206
  8. SEROQUEL [Suspect]
     Indication: DEPRESSION
     Route: 048
     Dates: start: 201206
  9. SEROQUEL [Suspect]
     Indication: INSOMNIA
     Route: 048
     Dates: start: 201206
  10. EFFEXOR [Concomitant]
     Dosage: GENERIC
  11. VENLAFAXINE [Concomitant]
     Indication: DEPRESSION
  12. VENLAFAXINE [Concomitant]
     Indication: DEPRESSION
  13. METFORMIN ER [Concomitant]
  14. LEVOTHYROXINE [Concomitant]
  15. LISINOPRIL [Concomitant]
     Route: 048

REACTIONS (6)
  - Disturbance in attention [Unknown]
  - Anxiety [Unknown]
  - Insomnia [Unknown]
  - Fatigue [Unknown]
  - Somnolence [Unknown]
  - Drug ineffective [Unknown]
